FAERS Safety Report 6433918-9 (Version None)
Quarter: 2009Q4

REPORT INFORMATION
  Report Type: 
  Country: None (occurrence: None)
  Receive Date: 20091106
  Receipt Date: 20091106
  Transmission Date: 20100525
  Serious: Yes (Hospitalization)
  Sender: FDA-Public Use
  Company Number: None

PATIENT
  Sex: Female
  Weight: 110 kg

DRUGS (1)
  1. TAXOL [Suspect]
     Dosage: 367 MG

REACTIONS (2)
  - INTERTRIGO [None]
  - WHITE BLOOD CELL COUNT INCREASED [None]
